FAERS Safety Report 9871438 (Version 2)
Quarter: 2014Q1

REPORT INFORMATION
  Report Type: Report from Study
  Country: IT (occurrence: IT)
  Receive Date: 20140205
  Receipt Date: 20140311
  Transmission Date: 20141002
  Serious: Yes (Hospitalization, Other)
  Sender: FDA-Public Use
  Company Number: PHHY2014IT014032

PATIENT
  Age: 60 Year
  Sex: Male
  Weight: 84 kg

DRUGS (18)
  1. OXALIPLATIN [Suspect]
     Indication: GASTROOESOPHAGEAL CANCER
     Dosage: 170 MG, QW2
     Route: 042
     Dates: start: 20131107
  2. LEVOFOLINIC ACID [Suspect]
     Indication: GASTROOESOPHAGEAL CANCER
     Dosage: 400 MG, QW2
     Route: 042
     Dates: start: 20131107
  3. 5 FLUORO URACIL [Suspect]
     Indication: GASTROOESOPHAGEAL CANCER
     Dosage: 800 MG, QW2
     Route: 040
     Dates: start: 20131107
  4. 5 FLUORO URACIL [Suspect]
     Dosage: 4800 MG, QW2
     Route: 042
  5. PLACEBO [Suspect]
     Indication: GASTROOESOPHAGEAL CANCER
     Route: 042
     Dates: start: 20131107
  6. ENOXAPARIN SODIUM [Concomitant]
     Indication: ATRIAL FIBRILLATION
     Dosage: 8000 IU, UNK
     Route: 058
     Dates: start: 201307
  7. FLECAINIDE ACETATE [Concomitant]
     Indication: ARRHYTHMIA
     Dosage: 50 MG, UNK
     Route: 048
     Dates: start: 20130903
  8. DEXAMETHASONE [Concomitant]
     Indication: PROPHYLACTIC CHEMOTHERAPY
     Dosage: 8 MG, DAILY
     Route: 042
     Dates: start: 20131120, end: 20131120
  9. APREPITANT [Concomitant]
     Indication: PROPHYLACTIC CHEMOTHERAPY
     Dosage: 125 MG, DAILY
     Route: 048
     Dates: start: 20131107
  10. PALONOSETRON [Concomitant]
     Indication: PROPHYLACTIC CHEMOTHERAPY
     Dosage: 250 UG, DAILY
     Route: 042
     Dates: start: 20131107
  11. ANTRA [Concomitant]
     Indication: CHEMOTHERAPY
     Dosage: 1 DF, UNK
     Route: 042
     Dates: start: 20131120, end: 20131120
  12. LASIX [Concomitant]
     Dosage: 1 DF, UNK
     Route: 042
     Dates: start: 20131120, end: 20131120
  13. ALBUMIN HUMAN [Concomitant]
     Indication: HYPOALBUMINAEMIA
     Dosage: 2 DF, DAILY
     Route: 042
     Dates: start: 20131121, end: 20131121
  14. CIPROXIN [Concomitant]
     Dosage: 1 DF, QD
     Route: 042
     Dates: start: 20131210, end: 20131218
  15. PERFALGAN [Concomitant]
     Indication: PAIN
     Dosage: 1 DF, QD
     Route: 042
     Dates: start: 20131213, end: 20131218
  16. CLEXANE [Concomitant]
     Indication: VENOUS THROMBOSIS
     Dosage: 1 DF, QD
     Dates: start: 20131127
  17. BISOPROLOL [Concomitant]
     Indication: CARDIAC FAILURE
     Dosage: 2.5 MG, DAILY
     Route: 048
     Dates: start: 20131127
  18. PARACETAMOL [Concomitant]
     Indication: PAIN
     Dosage: 1000 MG, DAILY
     Route: 042
     Dates: start: 20131218

REACTIONS (8)
  - Pleural effusion [Unknown]
  - Cough [Unknown]
  - Dyspnoea [Unknown]
  - Intestinal obstruction [Not Recovered/Not Resolved]
  - Vomiting [Not Recovered/Not Resolved]
  - Ascites [Unknown]
  - Gastrooesophageal cancer [Unknown]
  - Malignant neoplasm progression [Unknown]
